FAERS Safety Report 11312421 (Version 2)
Quarter: 2015Q3

REPORT INFORMATION
  Report Type: Spontaneous
  Country: CN (occurrence: CN)
  Receive Date: 20150727
  Receipt Date: 20150803
  Transmission Date: 20151125
  Serious: Yes (Death)
  Sender: FDA-Public Use
  Company Number: CN-BRACCO-001961

PATIENT
  Age: 71 Year
  Sex: Male
  Weight: 53 kg

DRUGS (3)
  1. NORMAL SALINE [Concomitant]
     Active Substance: SODIUM CHLORIDE
     Route: 041
     Dates: start: 20150713, end: 20150713
  2. ALPROSTADIL. [Concomitant]
     Active Substance: ALPROSTADIL
     Route: 041
     Dates: start: 20150713, end: 20150713
  3. IOPAMIRO [Suspect]
     Active Substance: IOPAMIDOL
     Indication: ANGIOGRAM
     Route: 042
     Dates: start: 20150713, end: 20150713

REACTIONS (1)
  - Anaphylactic shock [Fatal]

NARRATIVE: CASE EVENT DATE: 20150713
